FAERS Safety Report 18947737 (Version 14)
Quarter: 2022Q3

REPORT INFORMATION
  Report Type: Report from Study
  Country: CO (occurrence: CO)
  Receive Date: 20210226
  Receipt Date: 20220930
  Transmission Date: 20221026
  Serious: Yes (Hospitalization, Other)
  Sender: FDA-Public Use
  Company Number: CO-SHIRE-CO202004889

PATIENT
  Age: 10 Year
  Sex: Male
  Weight: 31.293 kg

DRUGS (16)
  1. IDURSULFASE [Suspect]
     Active Substance: IDURSULFASE
     Indication: Mucopolysaccharidosis II
     Dosage: 12 MILLIGRAM, 1/WEEK
     Route: 050
     Dates: start: 20121009
  2. IDURSULFASE [Suspect]
     Active Substance: IDURSULFASE
     Dosage: 12 MILLIGRAM
     Route: 042
     Dates: start: 20121009
  3. IDURSULFASE [Suspect]
     Active Substance: IDURSULFASE
     Dosage: 20 MILLIGRAM, 1/WEEK
     Route: 042
     Dates: start: 20121009
  4. IDURSULFASE [Suspect]
     Active Substance: IDURSULFASE
     Dosage: 13.9 MILLIGRAM, 1/WEEK
     Route: 042
     Dates: start: 20121009
  5. IDURSULFASE [Suspect]
     Active Substance: IDURSULFASE
     Dosage: 13.9 MILLIGRAM
     Route: 042
     Dates: start: 20121009
  6. IDURSULFASE [Suspect]
     Active Substance: IDURSULFASE
     Dosage: 15.8 MILLIGRAM, 1/WEEK
     Route: 042
     Dates: start: 20121009
  7. IDURSULFASE [Suspect]
     Active Substance: IDURSULFASE
     Dosage: 10 MILLIGRAM
     Route: 042
     Dates: start: 20121009
  8. IDURSULFASE [Suspect]
     Active Substance: IDURSULFASE
     Dosage: 16.5 MILLIGRAM, 1/WEEK
     Route: 042
     Dates: start: 20121009
  9. IDURSULFASE [Suspect]
     Active Substance: IDURSULFASE
     Dosage: UNK
     Route: 065
     Dates: start: 2013
  10. IDURSULFASE [Suspect]
     Active Substance: IDURSULFASE
     Dosage: 12 MILLIGRAM, 1/WEEK
     Route: 065
     Dates: start: 20170310
  11. IDURSULFASE [Suspect]
     Active Substance: IDURSULFASE
     Dosage: 16.5 MILLIGRAM, 1/WEEK
     Route: 042
  12. HYDROCORTISONE [Concomitant]
     Active Substance: HYDROCORTISONE
     Route: 065
  13. LEVETIRACETAM [Concomitant]
     Active Substance: LEVETIRACETAM
     Indication: Sleep disorder
     Route: 065
  14. RISPERIDONE [Concomitant]
     Active Substance: RISPERIDONE
     Indication: Sleep disorder
     Route: 065
  15. VALPROIC ACID [Concomitant]
     Active Substance: VALPROIC ACID
     Route: 065
  16. OSELTAMIVIR [Concomitant]
     Active Substance: OSELTAMIVIR
     Indication: Epilepsy with myoclonic-atonic seizures
     Route: 065

REACTIONS (23)
  - Respiratory distress [Recovering/Resolving]
  - COVID-19 [Recovered/Resolved]
  - Abdominal discomfort [Recovering/Resolving]
  - Laryngospasm [Unknown]
  - Adverse event [Recovering/Resolving]
  - Weight increased [Unknown]
  - Body height increased [Unknown]
  - Weight decreased [Unknown]
  - Nasal congestion [Recovering/Resolving]
  - Malaise [Recovering/Resolving]
  - Skin discharge [Recovering/Resolving]
  - Pain in extremity [Recovered/Resolved]
  - Poor venous access [Unknown]
  - Infusion related reaction [Unknown]
  - Rash macular [Recovering/Resolving]
  - Pyrexia [Recovering/Resolving]
  - Off label use [Unknown]
  - General physical health deterioration [Unknown]
  - Therapy interrupted [Recovering/Resolving]
  - Product formulation issue [Unknown]
  - Incorrect dose administered [Unknown]
  - Pain [Unknown]
  - Erythema [Unknown]

NARRATIVE: CASE EVENT DATE: 20200204
